FAERS Safety Report 13941771 (Version 1)
Quarter: 2017Q3

REPORT INFORMATION
  Report Type: Spontaneous
  Country: GB (occurrence: GB)
  Receive Date: 20170906
  Receipt Date: 20170906
  Transmission Date: 20171127
  Serious: Yes (Hospitalization, Other)
  Sender: FDA-Public Use
  Company Number: GB-TEVA-801849ACC

PATIENT
  Age: 29 Year
  Sex: Male

DRUGS (6)
  1. MEXEDRONE [Suspect]
     Active Substance: MEXEDRONE
  2. PREGABALIN. [Suspect]
     Active Substance: PREGABALIN
     Dosage: FREQ: ONCE
     Route: 048
     Dates: start: 20170503
  3. METHADONE [Suspect]
     Active Substance: METHADONE HYDROCHLORIDE
  4. MCAT [Suspect]
     Active Substance: MEPHEDRONE
     Dosage: FREQ: ONCE
     Route: 042
     Dates: start: 20170503
  5. DIAZEPAM. [Suspect]
     Active Substance: DIAZEPAM
  6. COCAINE [Suspect]
     Active Substance: COCAINE

REACTIONS (3)
  - Depressed level of consciousness [Recovered/Resolved]
  - Coma scale abnormal [None]
  - Substance use [None]

NARRATIVE: CASE EVENT DATE: 20170503
